FAERS Safety Report 11655384 (Version 2)
Quarter: 2015Q4

REPORT INFORMATION
  Report Type: Spontaneous
  Country: US (occurrence: US)
  Receive Date: 20151023
  Receipt Date: 20151208
  Transmission Date: 20160304
  Serious: No
  Sender: FDA-Public Use
  Company Number: US-ASTRAZENECA-2015SE98843

PATIENT
  Age: 72 Year
  Sex: Female

DRUGS (4)
  1. SIMVASTATIN. [Concomitant]
     Active Substance: SIMVASTATIN
     Indication: BLOOD CHOLESTEROL INCREASED
     Dosage: 10-20 MG, DAILY
     Route: 048
  2. LOSARTAN. [Concomitant]
     Active Substance: LOSARTAN
     Route: 048
  3. SYMBICORT [Suspect]
     Active Substance: BUDESONIDE\FORMOTEROL FUMARATE DIHYDRATE
     Indication: ASTHMA
     Dosage: 160/4.5 MCG 1-2 PUFFS DAILY
     Route: 055
     Dates: start: 201503
  4. SYMBICORT [Suspect]
     Active Substance: BUDESONIDE\FORMOTEROL FUMARATE DIHYDRATE
     Indication: ASTHMA
     Dosage: 160/4.5 MCG 2 PUFFS DAILY
     Route: 055
     Dates: start: 2013

REACTIONS (6)
  - Intentional device misuse [Unknown]
  - Wheezing [Unknown]
  - Cough [Unknown]
  - Off label use [Unknown]
  - Expired device used [Unknown]
  - Device defective [Unknown]

NARRATIVE: CASE EVENT DATE: 2015
